FAERS Safety Report 6336760-2 (Version None)
Quarter: 2009Q3

REPORT INFORMATION
  Report Type: 
  Country: None (occurrence: None)
  Receive Date: 20090901
  Receipt Date: 20090824
  Transmission Date: 20100115
  Serious: Yes (Other)
  Sender: FDA-Public Use
  Company Number: US-ASTRAZENECA-2009UW21925

PATIENT
  Age: 51 Year
  Sex: Male
  Weight: 86.2 kg

DRUGS (7)
  1. CRESTOR [Suspect]
     Indication: HYPERCHOLESTEROLAEMIA
     Route: 048
     Dates: start: 20070101
  2. ALTACE [Concomitant]
     Indication: HYPERTENSION
     Route: 048
  3. TOPROL-XL [Concomitant]
     Indication: HYPERTENSION
     Route: 048
  4. GLUCOSAMINE [Concomitant]
     Route: 065
  5. OMEGA-3 FATTY ACIDS [Concomitant]
     Route: 065
  6. AMOXICILLIN [Concomitant]
     Indication: UPPER RESPIRATORY TRACT INFECTION
     Route: 048
     Dates: start: 20090325
  7. ADVAIR HFA [Concomitant]
     Indication: UPPER RESPIRATORY TRACT INFECTION
     Dates: start: 20090325

REACTIONS (2)
  - EXOSTOSIS [None]
  - ROTATOR CUFF SYNDROME [None]
